FAERS Safety Report 7663551 (Version 3)
Quarter: 2013Q3

REPORT INFORMATION
  Report Type: Spontaneous
  Country: US (occurrence: US)
  Receive Date: 20101110
  Receipt Date: 20130801
  Transmission Date: 20140515
  Serious: Yes (Other)
  Sender: FDA-Public Use
  Company Number: US-PFIZER INC-2010141410

PATIENT
  Sex: Female
  Weight: 67 kg

DRUGS (6)
  1. XALATAN [Suspect]
     Indication: INTRAOCULAR PRESSURE INCREASED
     Dosage: ONE DROP IN EACH EYE, 1X/DAY
     Route: 031
     Dates: start: 201005
  2. SIMVASTATIN [Concomitant]
     Indication: BLOOD CHOLESTEROL ABNORMAL
     Dosage: UNK, 1X/DAY
     Route: 048
  3. LISINOPRIL [Concomitant]
     Indication: BLOOD PRESSURE ABNORMAL
     Dosage: UNK, 1X/DAY
     Route: 048
  4. FLUOXETINE [Concomitant]
     Dosage: UNK, 1X/DAY
     Route: 048
  5. FUROSEMIDE [Concomitant]
     Indication: DIURETIC THERAPY
     Dosage: UNK, 1X/DAY
     Route: 048
  6. PROZAC [Concomitant]
     Indication: ANXIETY
     Dosage: UNK, 1X/DAY
     Route: 048

REACTIONS (2)
  - Kidney infection [Unknown]
  - Drug dose omission [Unknown]
